FAERS Safety Report 19421710 (Version 1)
Quarter: 2021Q2

REPORT INFORMATION
  Report Type: Spontaneous
  Country: US (occurrence: US)
  Receive Date: 20210616
  Receipt Date: 20210616
  Transmission Date: 20210717
  Serious: No
  Sender: FDA-Public Use
  Company Number: US-TEVA-2021-US-1921838

PATIENT
  Age: 59 Year
  Sex: Male

DRUGS (17)
  1. GABAPENTIN. [Concomitant]
     Active Substance: GABAPENTIN
     Route: 048
  2. OMEPRAZOLE. [Concomitant]
     Active Substance: OMEPRAZOLE
  3. MINOXIDIL. [Concomitant]
     Active Substance: MINOXIDIL
     Route: 048
  4. AUSTEDO [Suspect]
     Active Substance: DEUTETRABENAZINE
     Dosage: 30 MILLIGRAM DAILY; STRENGTH:6+9MG
     Dates: start: 2021
  5. LISINOPRIL. [Concomitant]
     Active Substance: LISINOPRIL
     Route: 048
  6. TORSEMIDE. [Concomitant]
     Active Substance: TORSEMIDE
     Route: 048
  7. AUSTEDO [Suspect]
     Active Substance: DEUTETRABENAZINE
     Dosage: 24 MILLIGRAM DAILY;
     Dates: start: 2021
  8. ADDERALL [Concomitant]
     Active Substance: AMPHETAMINE ASPARTATE\AMPHETAMINE SULFATE\DEXTROAMPHETAMINE SACCHARATE\DEXTROAMPHETAMINE SULFATE
     Route: 048
  9. NIFEDIPINE. [Concomitant]
     Active Substance: NIFEDIPINE
     Dosage: OSMOTIC RELEASE EXTENDED RELEASE TABLET 24 HOUR 90 MG
  10. AUSTEDO [Suspect]
     Active Substance: DEUTETRABENAZINE
     Indication: TARDIVE DYSKINESIA
     Dosage: 24 MILLIGRAM DAILY;
     Dates: start: 20210422
  11. CARVEDILOL. [Concomitant]
     Active Substance: CARVEDILOL
     Route: 048
  12. HYDRALAZINE [Concomitant]
     Active Substance: HYDRALAZINE HYDROCHLORIDE
     Route: 048
  13. FOSRENOL [Concomitant]
     Active Substance: LANTHANUM CARBONATE
     Route: 048
  14. ALPRAZOLAM. [Concomitant]
     Active Substance: ALPRAZOLAM
     Route: 048
  15. ARMODAFINIL. [Concomitant]
     Active Substance: ARMODAFINIL
     Route: 048
  16. HYDROCODONE/ACETAMINOPHEN [Concomitant]
     Active Substance: ACETAMINOPHEN\HYDROCODONE
     Dosage: 10?325 MILLIGRAM
     Route: 048
  17. ATORVASTATIN [Concomitant]
     Active Substance: ATORVASTATIN
     Route: 048

REACTIONS (1)
  - Muscle twitching [Recovering/Resolving]
